FAERS Safety Report 17363480 (Version 5)
Quarter: 2022Q3

REPORT INFORMATION
  Report Type: Spontaneous
  Country: US (occurrence: US)
  Receive Date: 20200203
  Receipt Date: 20220822
  Transmission Date: 20221027
  Serious: Yes (Other)
  Sender: FDA-Public Use
  Company Number: US-JUBILANT CADISTA PHARMACEUTICALS-2019JUB00272

PATIENT
  Age: 61 Year
  Sex: Male
  Weight: 77.098 kg

DRUGS (9)
  1. TERAZOSIN [Suspect]
     Active Substance: TERAZOSIN HYDROCHLORIDE
     Indication: Blood potassium decreased
     Dosage: 2 MG, 1X/DAY IN THE EVENING
     Route: 048
     Dates: start: 20190327, end: 20190329
  2. TERAZOSIN [Suspect]
     Active Substance: TERAZOSIN HYDROCHLORIDE
     Indication: Blood pressure abnormal
  3. TERAZOSIN [Suspect]
     Active Substance: TERAZOSIN HYDROCHLORIDE
     Indication: Sodium retention
  4. INSULIN NOS [Suspect]
     Active Substance: INSULIN NOS
     Dosage: UNK, 1X/DAY AT ABOUT 3:00 PM
  5. AMLODIPINE [Suspect]
     Active Substance: AMLODIPINE BESYLATE
  6. FINASTERIDE [Concomitant]
     Active Substance: FINASTERIDE
  7. ATORVASTATIN [Concomitant]
     Active Substance: ATORVASTATIN
     Dosage: 40 MG, 1X/DAY AT NIGHT
  8. FISH OIL [Concomitant]
     Active Substance: FISH OIL
  9. COENZYME Q10 [Concomitant]
     Active Substance: DIETARY SUPPLEMENT\UBIDECARENONE

REACTIONS (7)
  - Blood pressure increased [Unknown]
  - Cerebrovascular accident [Unknown]
  - Burning sensation [Recovered/Resolved]
  - Blood potassium decreased [Unknown]
  - Feeling abnormal [Unknown]
  - Off label use [Unknown]
  - Drug ineffective [Recovered/Resolved]

NARRATIVE: CASE EVENT DATE: 20190327
